FAERS Safety Report 12694018 (Version 2)
Quarter: 2016Q3

REPORT INFORMATION
  Report Type: Spontaneous
  Country: US (occurrence: US)
  Receive Date: 20160829
  Receipt Date: 20160915
  Transmission Date: 20161109
  Serious: Yes (Hospitalization)
  Sender: FDA-Public Use
  Company Number: US-OTSUKA-2016_020385

PATIENT
  Age: 94 Year
  Sex: Female

DRUGS (2)
  1. SAMSCA [Suspect]
     Active Substance: TOLVAPTAN
     Indication: BLOOD SODIUM DECREASED
     Dosage: UNK
     Route: 065
     Dates: start: 2016
  2. SAMSCA [Suspect]
     Active Substance: TOLVAPTAN
     Dosage: UNK
     Route: 065
     Dates: start: 2016, end: 2016

REACTIONS (2)
  - Gingivitis [Recovered/Resolved]
  - Blood sodium decreased [Recovering/Resolving]

NARRATIVE: CASE EVENT DATE: 2016
